FAERS Safety Report 19569293 (Version 2)
Quarter: 2021Q3

REPORT INFORMATION
  Report Type: Report from Study
  Country: CO (occurrence: CO)
  Receive Date: 20210716
  Receipt Date: 20210721
  Transmission Date: 20211014
  Serious: Yes (Hospitalization)
  Sender: FDA-Public Use
  Company Number: CO-BIOGEN-2021BI01029459

PATIENT
  Age: 1 Year
  Sex: Female

DRUGS (4)
  1. SPINRAZA [Suspect]
     Active Substance: NUSINERSEN
     Dosage: FOURTH DOSE, DAY 50
     Route: 037
     Dates: start: 20210104
  2. SPINRAZA [Suspect]
     Active Substance: NUSINERSEN
     Indication: SPINAL MUSCULAR ATROPHY
     Dosage: FIRST DOSE
     Route: 037
     Dates: start: 202011
  3. SPINRAZA [Suspect]
     Active Substance: NUSINERSEN
     Dosage: SECOND DOSE, DAY 14
     Route: 037
     Dates: start: 202011
  4. SPINRAZA [Suspect]
     Active Substance: NUSINERSEN
     Dosage: THIRD DOSE, DAY 28
     Route: 037
     Dates: start: 20201222

REACTIONS (4)
  - Urinary tract infection [Unknown]
  - Prescribed underdose [Unknown]
  - Aspiration [Unknown]
  - Muscular weakness [Unknown]
